FAERS Safety Report 21266387 (Version 1)
Quarter: 2022Q3

REPORT INFORMATION
  Report Type: Spontaneous
  Country: US (occurrence: None)
  Receive Date: 20220829
  Receipt Date: 20220829
  Transmission Date: 20221026
  Serious: Yes (Life-Threatening, Hospitalization)
  Sender: FDA-Public Use
  Company Number: None

PATIENT
  Age: 61 Year
  Sex: Male
  Weight: 85.73 kg

DRUGS (14)
  1. PROLIA [Suspect]
     Active Substance: DENOSUMAB
     Indication: Osteoporosis
     Dosage: OTHER FREQUENCY : EVERY 6 MONTHS;?
     Route: 058
     Dates: start: 20161114, end: 20220518
  2. ZONISAMIDE [Concomitant]
     Active Substance: ZONISAMIDE
     Dates: start: 20180816
  3. demeclocycline 300mg tablet [Concomitant]
     Dates: start: 20170603
  4. lacosamide 200mg tablet [Concomitant]
     Dates: start: 20201203
  5. LEVETIRACETAM [Concomitant]
     Active Substance: LEVETIRACETAM
     Dates: start: 20160711
  6. levothyroxine 75mcg tablet [Concomitant]
     Dates: start: 20160711
  7. losartan 25mg tablet [Concomitant]
     Dates: start: 20160711
  8. pantoprazole 40mg tablet [Concomitant]
     Dates: start: 20160711
  9. RISPERIDONE [Concomitant]
     Active Substance: RISPERIDONE
     Dates: start: 20160711
  10. POLYCARBOPHIL [Concomitant]
     Active Substance: POLYCARBOPHIL
     Dates: start: 20210411
  11. CALCIUM CITRATE [Concomitant]
     Active Substance: CALCIUM CITRATE
     Dates: start: 20160711
  12. FERROUS SULFATE [Concomitant]
     Active Substance: FERROUS SULFATE
     Dates: start: 20160711
  13. ascorbic acid 500mg [Concomitant]
     Dates: start: 20160711
  14. cholecalciferol 1000 unit tablet [Concomitant]
     Dates: start: 20160711

REACTIONS (6)
  - Heart rate increased [None]
  - Blood pressure immeasurable [None]
  - Unresponsive to stimuli [None]
  - Bronchospasm [None]
  - Angioedema [None]
  - Hypersensitivity [None]

NARRATIVE: CASE EVENT DATE: 20220518
